FAERS Safety Report 6158833-X (Version None)
Quarter: 2009Q2

REPORT INFORMATION
  Report Type: 
  Country: None (occurrence: None)
  Receive Date: 20090415
  Receipt Date: 20090407
  Transmission Date: 20091009
  Serious: Yes (Other)
  Sender: FDA-Public Use
  Company Number: DSA_33440_2009

PATIENT
  Sex: Female

DRUGS (10)
  1. XENAZINE [Suspect]
     Indication: BALLISMUS
     Dosage: (25 MG TID)
     Dates: start: 20090327, end: 20090327
  2. FLEXERIL [Concomitant]
  3. LISINOPRIL AND HYDROCHLOROTHIAZIDE [Concomitant]
  4. ZOCOR [Concomitant]
  5. ZOLOFT /01011402/ [Concomitant]
  6. PROCHLORPERAZINE [Concomitant]
  7. TRAMADOL HCL [Concomitant]
  8. CLONAZEPAM [Concomitant]
  9. BENADRYL /01563701/ [Concomitant]
  10. ALEVE [Concomitant]

REACTIONS (10)
  - CHEST PAIN [None]
  - DEPRESSION [None]
  - DIARRHOEA [None]
  - EATING DISORDER [None]
  - ERYTHEMA [None]
  - MIGRAINE [None]
  - RASH [None]
  - SWELLING [None]
  - SWELLING FACE [None]
  - URTICARIA [None]
